FAERS Safety Report 8980497 (Version 2)
Quarter: 2013Q1

REPORT INFORMATION
  Report Type: Spontaneous
  Country: US (occurrence: US)
  Receive Date: 20121221
  Receipt Date: 20130314
  Transmission Date: 20140127
  Serious: Yes (Hospitalization, Other)
  Sender: FDA-Public Use
  Company Number: US-PFIZER INC-2012322954

PATIENT
  Age: 61 Year
  Sex: Female
  Weight: 79.37 kg

DRUGS (3)
  1. REVATIO [Suspect]
     Indication: PULMONARY HYPERTENSION
     Dosage: 40 MG, 3X/DAY
     Route: 048
  2. NIFEDIPINE [Concomitant]
     Dosage: 30 MG, 2X/DAY
  3. METOPROLOL [Concomitant]
     Indication: HYPERTENSION
     Dosage: 25 MG, 2X/DAY
     Route: 048

REACTIONS (2)
  - Cardiac failure congestive [Unknown]
  - Pulmonary arterial pressure increased [Unknown]
